FAERS Safety Report 10527007 (Version 1)
Quarter: 2014Q4

REPORT INFORMATION
  Report Type: Report from Study
  Country: FR (occurrence: FR)
  Receive Date: 20141020
  Receipt Date: 20141020
  Transmission Date: 20150528
  Serious: Yes (Other)
  Sender: FDA-Public Use
  Company Number: FR-ROCHE-1474315

PATIENT

DRUGS (2)
  1. INTERFERON ALFA-2A [Suspect]
     Active Substance: INTERFERON ALFA-2A
     Indication: MESOTHELIOMA MALIGNANT
     Dosage: 3 X 10(6) IU; ON DAYS 1 TO 4
     Route: 058
  2. CISPLATIN. [Suspect]
     Active Substance: CISPLATIN
     Indication: MESOTHELIOMA MALIGNANT
     Dosage: ON DAY 2
     Route: 065

REACTIONS (5)
  - Nausea [Unknown]
  - Weight decreased [Unknown]
  - Performance status decreased [Unknown]
  - Thrombocytopenia [Unknown]
  - Vomiting [Unknown]
